FAERS Safety Report 20941246 (Version 2)
Quarter: 2022Q3

REPORT INFORMATION
  Report Type: Spontaneous
  Country: US (occurrence: US)
  Receive Date: 20220609
  Receipt Date: 20220718
  Transmission Date: 20221026
  Serious: Yes (Other)
  Sender: FDA-Public Use
  Company Number: US-BEH-2022146325

PATIENT
  Age: 56 Year
  Sex: Female

DRUGS (2)
  1. HAEGARDA [Suspect]
     Active Substance: HUMAN C1-ESTERASE INHIBITOR
     Indication: Hereditary angioedema
     Dosage: 7200 INTERNATIONAL UNIT, BIW
     Route: 058
     Dates: start: 20200613
  2. HAEGARDA [Suspect]
     Active Substance: HUMAN C1-ESTERASE INHIBITOR
     Indication: Prophylaxis
     Dosage: 7200 INTERNATIONAL UNIT, BIW
     Route: 058
     Dates: start: 202006

REACTIONS (2)
  - Uterine leiomyoma [Unknown]
  - Uterine polyp [Unknown]

NARRATIVE: CASE EVENT DATE: 20220524
